FAERS Safety Report 18315346 (Version 4)
Quarter: 2020Q4

REPORT INFORMATION
  Report Type: Spontaneous
  Country: NZ (occurrence: NZ)
  Receive Date: 20200926
  Receipt Date: 20201207
  Transmission Date: 20210113
  Serious: Yes (Life-Threatening, Hospitalization, Other)
  Sender: FDA-Public Use
  Company Number: NZ-ACCORD-202580

PATIENT
  Age: 15 Year
  Sex: Male
  Weight: 49.2 kg

DRUGS (17)
  1. FLIXONASE [Interacting]
     Active Substance: FLUTICASONE PROPIONATE
     Indication: PRODUCT USED FOR UNKNOWN INDICATION
     Dosage: 1 SPRAY EACH NOSTRIL B.D, FLUTICASONE 50 MCG/SPRAY
  2. CEFTAZIDIME/CEFTAZIDIME PENTAHYDRATE [Concomitant]
     Active Substance: CEFTAZIDIME
     Indication: BRONCHOPULMONARY ASPERGILLOSIS ALLERGIC
     Route: 042
  3. RETINOL [Concomitant]
     Active Substance: RETINOL
     Dosage: 10,000 UNITS P.O. DAILY
  4. PREDNISONE. [Interacting]
     Active Substance: PREDNISONE
     Indication: BRONCHOPULMONARY ASPERGILLOSIS ALLERGIC
     Route: 048
  5. SERETIDE [Interacting]
     Active Substance: FLUTICASONE PROPIONATE\SALMETEROL XINAFOATE
     Indication: PRODUCT USED FOR UNKNOWN INDICATION
     Dosage: FLUTICASONE 125MCG/ SALMETEROL 25MCG, 2 PUFFS INH. B.D
  6. TESTOSTERONE. [Concomitant]
     Active Substance: TESTOSTERONE
     Dosage: 50 MG I.M. MONTHLY
     Route: 030
  7. CREON [Concomitant]
     Active Substance: PANCRELIPASE AMYLASE\PANCRELIPASE LIPASE\PANCRELIPASE PROTEASE
     Dosage: 10,000 UP TO 25 TABS P.O. DAILY
  8. MACROGOL/MACROGOL STEARATE [Concomitant]
     Active Substance: POLYETHYLENE GLYCOLS
     Dosage: SACHETS 1 P.O. DAILY
     Route: 048
  9. FLIXOTIDE [Interacting]
     Active Substance: FLUTICASONE PROPIONATE
     Indication: PRODUCT USED FOR UNKNOWN INDICATION
     Dosage: 2 PUFFS INH. B.D.
  10. TOBRAMYCIN. [Concomitant]
     Active Substance: TOBRAMYCIN
     Indication: BRONCHOPULMONARY ASPERGILLOSIS ALLERGIC
     Route: 042
  11. VITABDECK [Concomitant]
     Dosage: 4 CAPS P.O. DAILY
     Route: 048
  12. CETIRIZINE [Concomitant]
     Active Substance: CETIRIZINE HYDROCHLORIDE
     Dosage: 10 MG P.O. DAILY
  13. ITRACONAZOLE. [Suspect]
     Active Substance: ITRACONAZOLE
     Indication: BRONCHOPULMONARY ASPERGILLOSIS ALLERGIC
     Route: 048
  14. PHYTOMENADIONE [Concomitant]
     Active Substance: PHYTONADIONE
     Dosage: 10 MG P.O. TWICE WEEKLY
     Route: 048
  15. ZINC. [Concomitant]
     Active Substance: ZINC
     Dosage: 15 MG P.O. DAILY
     Route: 048
  16. SALBUTAMOL [Concomitant]
     Active Substance: ALBUTEROL
     Dosage: 2 PUFFS INH B.D.
  17. IRON [Concomitant]
     Active Substance: IRON
     Dosage: 325 MG P.O. DAILY

REACTIONS (3)
  - Insulin resistance [Recovering/Resolving]
  - Drug interaction [Unknown]
  - Hyperglycaemic hyperosmolar nonketotic syndrome [Recovered/Resolved]
